FAERS Safety Report 21812976 (Version 1)
Quarter: 2023Q1

REPORT INFORMATION
  Report Type: Report from Study
  Country: GB (occurrence: GB)
  Receive Date: 20230103
  Receipt Date: 20230103
  Transmission Date: 20230418
  Serious: Yes (Hospitalization)
  Sender: FDA-Public Use
  Company Number: GB-002147023-NVSC2022GB152279

PATIENT
  Sex: Male

DRUGS (1)
  1. OMNITROPE [Suspect]
     Active Substance: SOMATROPIN
     Indication: Growth hormone deficiency
     Dosage: 0.4 MG, QD (FORMULATION CARTRIDGE)
     Route: 058
     Dates: start: 2020

REACTIONS (3)
  - Gastric ulcer haemorrhage [Unknown]
  - Depressed mood [Unknown]
  - Product availability issue [Unknown]
